FAERS Safety Report 7167416-4 (Version None)
Quarter: 2010Q4

REPORT INFORMATION
  Report Type: 
  Country: None (occurrence: None)
  Receive Date: 20101216
  Receipt Date: 20091130
  Transmission Date: 20110411
  Serious: No
  Sender: FDA-Public Use
  Company Number: A0832233A

PATIENT
  Age: 69 Year
  Sex: Female

DRUGS (4)
  1. NICOTINE POLACRILEX [Suspect]
     Dates: start: 20091020
  2. NICOTINE POLACRILEX [Suspect]
     Dates: start: 20091020
  3. NICOTINE POLACRILEX [Suspect]
     Dates: start: 20091020
  4. NICORETTE [Suspect]
     Dates: start: 20091020

REACTIONS (1)
  - BLOOD GLUCOSE INCREASED [None]
